FAERS Safety Report 6793172-5 (Version None)
Quarter: 2010Q2

REPORT INFORMATION
  Report Type: 
  Country: None (occurrence: None)
  Receive Date: 20100624
  Receipt Date: 20090723
  Transmission Date: 20101027
  Serious: Yes (Other)
  Sender: FDA-Public Use
  Company Number: US-MYLANLABS-2009S1011694

PATIENT
  Age: 54 Year
  Sex: Male
  Weight: 68.04 kg

DRUGS (24)
  1. CLOZAPINE [Suspect]
     Indication: PSYCHOTIC DISORDER
     Route: 048
     Dates: end: 20090701
  2. CLOZAPINE [Suspect]
     Indication: SCHIZOAFFECTIVE DISORDER
     Route: 048
     Dates: end: 20090701
  3. AMLODIPINE [Concomitant]
     Route: 048
  4. CITALOPRAM [Concomitant]
     Route: 048
  5. COENZYME Q10 /00517201/ [Concomitant]
     Route: 048
  6. CYPROHEPTADINE HCL [Concomitant]
     Route: 048
  7. DIVALPROEX SODIUM EXTENDED RELEASE [Concomitant]
     Route: 048
  8. GABAPENTIN [Concomitant]
     Route: 048
     Dates: start: 20090519
  9. LISINOPRIL [Concomitant]
     Route: 048
  10. LORAZEPAM [Concomitant]
     Route: 048
  11. MIRTAZAPINE [Concomitant]
     Route: 048
  12. MYCOPHENOLATE MOFETIL [Concomitant]
     Route: 048
  13. OMEPRAZOLE [Concomitant]
     Dosage: TAKEN AT NOON
     Route: 048
     Dates: start: 20090314
  14. OXCARBAZEPINE [Concomitant]
     Route: 048
     Dates: start: 20090430, end: 20090630
  15. PALIPERIDONE [Concomitant]
     Route: 048
  16. PREDNISONE [Concomitant]
     Route: 048
     Dates: start: 20080624
  17. SODIUM CHLORIDE [Concomitant]
     Route: 048
  18. TACROLIMUS [Concomitant]
     Route: 048
     Dates: start: 20080624
  19. ACETAMINOPHEN [Concomitant]
     Route: 048
  20. LORAZEPAM [Concomitant]
     Route: 048
  21. MAGAL [Concomitant]
     Route: 048
  22. MILK OF MAGNESIA TAB [Concomitant]
     Route: 048
  23. PROCTOZONE H [Concomitant]
     Route: 054
  24. QUETIAPINE [Concomitant]
     Dosage: QUETIAPINE XR
     Dates: start: 20080707, end: 20090302

REACTIONS (2)
  - GRANULOCYTOPENIA [None]
  - LEUKOPENIA [None]
